FAERS Safety Report 9596776 (Version 1)
Quarter: 2013Q4

REPORT INFORMATION
  Report Type: Spontaneous
  Country: US (occurrence: US)
  Receive Date: 20131004
  Receipt Date: 20131004
  Transmission Date: 20140711
  Serious: No
  Sender: FDA-Public Use
  Company Number: US-BAYER-2013-120346

PATIENT
  Age: 49 Year
  Sex: Female
  Weight: 113.38 kg

DRUGS (4)
  1. ALEVE CAPLET [Suspect]
     Indication: HEADACHE
     Dosage: 2 DF, BID
     Route: 048
     Dates: start: 2000
  2. TYLENOL [PARACETAMOL] [Concomitant]
  3. SYNTHROID [Concomitant]
  4. LEVOTHYROXINE [Concomitant]

REACTIONS (2)
  - Extra dose administered [None]
  - Incorrect drug administration duration [None]
